FAERS Safety Report 6904780-2 (Version None)
Quarter: 2010Q3

REPORT INFORMATION
  Report Type: 
  Country: None (occurrence: None)
  Receive Date: 20100804
  Receipt Date: 20090708
  Transmission Date: 20110219
  Serious: No
  Sender: FDA-Public Use
  Company Number: US-PFIZER INC-2009198536

PATIENT
  Sex: Female
  Weight: 61 kg

DRUGS (2)
  1. LYRICA [Suspect]
     Indication: HERPES ZOSTER
     Dosage: 75 MG, 2X/DAY
     Route: 048
     Dates: start: 20080401, end: 20080701
  2. VALTREX [Concomitant]
     Indication: HERPES SIMPLEX
     Dosage: UNK

REACTIONS (6)
  - AGITATION [None]
  - DIPLOPIA [None]
  - FEELING DRUNK [None]
  - GAIT DISTURBANCE [None]
  - READING DISORDER [None]
  - VISION BLURRED [None]
